FAERS Safety Report 25739830 (Version 1)
Quarter: 2025Q3

REPORT INFORMATION
  Report Type: Spontaneous
  Country: EU (occurrence: EU)
  Receive Date: 20250829
  Receipt Date: 20250829
  Transmission Date: 20251020
  Serious: Yes (Other)
  Sender: MYLAN
  Company Number: None

PATIENT
  Age: 19 Year
  Sex: Male

DRUGS (28)
  1. PREGABALIN [Suspect]
     Active Substance: PREGABALIN
     Indication: Product used for unknown indication
  2. PREGABALIN [Suspect]
     Active Substance: PREGABALIN
     Route: 065
  3. PREGABALIN [Suspect]
     Active Substance: PREGABALIN
     Route: 065
  4. PREGABALIN [Suspect]
     Active Substance: PREGABALIN
  5. TRAMADOL [Suspect]
     Active Substance: TRAMADOL
     Indication: Product used for unknown indication
  6. TRAMADOL [Suspect]
     Active Substance: TRAMADOL
     Route: 065
  7. TRAMADOL [Suspect]
     Active Substance: TRAMADOL
     Route: 065
  8. TRAMADOL [Suspect]
     Active Substance: TRAMADOL
  9. COCAINE [Suspect]
     Active Substance: COCAINE
     Indication: Product used for unknown indication
  10. COCAINE [Suspect]
     Active Substance: COCAINE
     Route: 065
  11. COCAINE [Suspect]
     Active Substance: COCAINE
     Route: 065
  12. COCAINE [Suspect]
     Active Substance: COCAINE
  13. CLONAZEPAM [Suspect]
     Active Substance: CLONAZEPAM
     Indication: Product used for unknown indication
  14. CLONAZEPAM [Suspect]
     Active Substance: CLONAZEPAM
     Route: 065
  15. CLONAZEPAM [Suspect]
     Active Substance: CLONAZEPAM
     Route: 065
  16. CLONAZEPAM [Suspect]
     Active Substance: CLONAZEPAM
  17. DIAZEPAM [Suspect]
     Active Substance: DIAZEPAM
     Indication: Product used for unknown indication
  18. DIAZEPAM [Suspect]
     Active Substance: DIAZEPAM
     Route: 065
  19. DIAZEPAM [Suspect]
     Active Substance: DIAZEPAM
     Route: 065
  20. DIAZEPAM [Suspect]
     Active Substance: DIAZEPAM
  21. HEROIN [Suspect]
     Active Substance: DIAMORPHINE
     Indication: Product used for unknown indication
  22. HEROIN [Suspect]
     Active Substance: DIAMORPHINE
     Route: 065
  23. HEROIN [Suspect]
     Active Substance: DIAMORPHINE
     Route: 065
  24. HEROIN [Suspect]
     Active Substance: DIAMORPHINE
  25. CANNABIS SATIVA SUBSP. INDICA TOP [Suspect]
     Active Substance: CANNABIS SATIVA SUBSP. INDICA TOP
     Indication: Product used for unknown indication
  26. CANNABIS SATIVA SUBSP. INDICA TOP [Suspect]
     Active Substance: CANNABIS SATIVA SUBSP. INDICA TOP
     Route: 065
  27. CANNABIS SATIVA SUBSP. INDICA TOP [Suspect]
     Active Substance: CANNABIS SATIVA SUBSP. INDICA TOP
     Route: 065
  28. CANNABIS SATIVA SUBSP. INDICA TOP [Suspect]
     Active Substance: CANNABIS SATIVA SUBSP. INDICA TOP

REACTIONS (7)
  - Substance use disorder [Unknown]
  - Drug use disorder [Unknown]
  - Tachycardia [Recovered/Resolved]
  - Hypertension [Recovered/Resolved]
  - Agitation [Recovered/Resolved]
  - Confusional state [Recovered/Resolved]
  - Hyperhidrosis [Recovered/Resolved]

NARRATIVE: CASE EVENT DATE: 20250505
